FAERS Safety Report 12171571 (Version 1)
Quarter: 2016Q1

REPORT INFORMATION
  Report Type: Report from Study
  Country: US (occurrence: US)
  Receive Date: 20160311
  Receipt Date: 20160311
  Transmission Date: 20160526
  Serious: Yes (Other)
  Sender: FDA-Public Use
  Company Number: US-PFIZER INC-2016063802

PATIENT
  Age: 67 Year
  Sex: Female

DRUGS (3)
  1. AMBRISENTAN [Suspect]
     Active Substance: AMBRISENTAN
     Dosage: 10 MG, 1X/DAY
     Dates: start: 20140804
  2. AMBRISENTAN [Suspect]
     Active Substance: AMBRISENTAN
     Dosage: 5 MG, 1X/DAY
  3. REVATIO [Suspect]
     Active Substance: SILDENAFIL CITRATE
     Dosage: UNK

REACTIONS (13)
  - Productive cough [Recovering/Resolving]
  - Condition aggravated [Unknown]
  - Dizziness [Recovered/Resolved]
  - Pulmonary arterial hypertension [Unknown]
  - Nausea [Recovering/Resolving]
  - Hypotension [Unknown]
  - Pulmonary arterial pressure increased [Unknown]
  - Anxiety [Not Recovered/Not Resolved]
  - Heart rate irregular [Unknown]
  - Vomiting [Recovering/Resolving]
  - Oxygen saturation decreased [Recovered/Resolved]
  - Drug ineffective [Unknown]
  - Irritable bowel syndrome [Not Recovered/Not Resolved]
